FAERS Safety Report 21375692 (Version 3)
Quarter: 2022Q4

REPORT INFORMATION
  Report Type: Spontaneous
  Country: JP (occurrence: JP)
  Receive Date: 20220926
  Receipt Date: 20221129
  Transmission Date: 20230113
  Serious: Yes (Hospitalization)
  Sender: FDA-Public Use
  Company Number: JP-BEH-2022149806

PATIENT
  Age: 69 Year
  Sex: Female
  Weight: 66 kg

DRUGS (9)
  1. PRIVIGEN [Suspect]
     Active Substance: HUMAN IMMUNOGLOBULIN G
     Indication: Hypogammaglobulinaemia
     Dosage: 5 GRAM/50ML, QD
     Route: 041
     Dates: start: 20220912, end: 20220912
  2. HUMAN RED BLOOD CELL [Concomitant]
     Active Substance: HUMAN RED BLOOD CELL
     Dosage: UNK
     Dates: start: 20220912
  3. CARVEDILOL [Concomitant]
     Active Substance: CARVEDILOL
     Indication: Cardiac failure
     Dosage: 5 MILLIGRAM, QD (MORNING)
     Route: 048
     Dates: start: 202010
  4. AZOSEMIDE [Concomitant]
     Active Substance: AZOSEMIDE
     Indication: Cardiac failure
     Dosage: 15 MILLIGRAM, BID (MORNING, NOON)
     Route: 048
     Dates: start: 202010
  5. ENALAPRIL MALEATE [Concomitant]
     Active Substance: ENALAPRIL MALEATE
     Indication: Cardiac failure
     Dosage: 2.5 MILLIGRAM, QD (MORNING)
     Route: 048
     Dates: start: 202010
  6. AMIODARONE HYDROCHLORIDE [Concomitant]
     Active Substance: AMIODARONE HYDROCHLORIDE
     Indication: Atrial fibrillation
     Dosage: 100 MILLIGRAM, QD (MORNING)
     Route: 048
     Dates: start: 202010
  7. XARELTO [Concomitant]
     Active Substance: RIVAROXABAN
     Indication: Atrial fibrillation
     Dosage: 15 MILLIGRAM, QD (MORNING)
     Route: 048
     Dates: start: 202010
  8. LOXOPROFEN [Concomitant]
     Active Substance: LOXOPROFEN
     Indication: Spondylitis
     Dosage: 60 MILLIGRAM, BID (MORNING, EVENING)
     Route: 048
     Dates: start: 20220601
  9. CALONAL [Concomitant]
     Active Substance: ACETAMINOPHEN
     Indication: Spondylitis
     Dosage: 600 MILLIGRAM, TID (MORNING,NOON, BEFORE BEDTIME)
     Route: 048
     Dates: start: 20220426

REACTIONS (9)
  - Anaphylactic reaction [Recovered/Resolved]
  - Hypersensitivity [Recovered/Resolved]
  - Feeling abnormal [Recovered/Resolved]
  - Chills [Recovered/Resolved]
  - Blood pressure increased [Recovered/Resolved]
  - Heart rate increased [Recovered/Resolved]
  - Oxygen saturation decreased [Recovered/Resolved]
  - Dyspnoea [Recovered/Resolved]
  - Wheezing [Recovered/Resolved]

NARRATIVE: CASE EVENT DATE: 20220912
